FAERS Safety Report 19175046 (Version 3)
Quarter: 2024Q2

REPORT INFORMATION
  Report Type: Other
  Country: US (occurrence: None)
  Receive Date: 20210424
  Receipt Date: 20240531
  Transmission Date: 20240716
  Serious: Yes (Other)
  Sender: FDA-Public Use
  Company Number: US-ROCHE-2812071

PATIENT

DRUGS (4)
  1. BEVACIZUMAB [Suspect]
     Active Substance: BEVACIZUMAB
     Indication: Ovarian cancer
     Route: 042
  2. NIRAPARIB [Suspect]
     Active Substance: NIRAPARIB
     Indication: Ovarian cancer
     Dosage: NIRAPARIB 300 MG OR 200 MG (FOR WEIGHT {77 KG OR PLATELET COUNT {150,000/MICRO L AT SCREENING) QD UN
     Route: 065
  3. DOSTARLIMAB [Suspect]
     Active Substance: DOSTARLIMAB
     Indication: Ovarian cancer
     Dosage: EVERY 3 WEEKS FOR FOUR CYCLES (21 DAYS EACH)
     Route: 042
  4. DOSTARLIMAB [Suspect]
     Active Substance: DOSTARLIMAB
     Route: 042

REACTIONS (29)
  - Neutropenia [Unknown]
  - Hypertension [Unknown]
  - Fatigue [Unknown]
  - Anaemia [Unknown]
  - Intestinal perforation [Unknown]
  - Thrombocytopenia [Unknown]
  - Small intestinal perforation [Unknown]
  - Nausea [Unknown]
  - Vomiting [Unknown]
  - Platelet count decreased [Unknown]
  - Headache [Unknown]
  - Constipation [Unknown]
  - Decreased appetite [Unknown]
  - Abdominal pain [Unknown]
  - Aspartate aminotransferase increased [Unknown]
  - Diarrhoea [Unknown]
  - Dyspnoea [Unknown]
  - Hyponatraemia [Unknown]
  - Insomnia [Unknown]
  - Arthralgia [Unknown]
  - Blood creatinine increased [Unknown]
  - Neutrophil count decreased [Unknown]
  - Alanine aminotransferase increased [Unknown]
  - Cough [Unknown]
  - Myalgia [Unknown]
  - Rash [Unknown]
  - Back pain [Unknown]
  - Blood alkaline phosphatase increased [Unknown]
  - Small intestinal obstruction [Unknown]
